FAERS Safety Report 24566305 (Version 1)
Quarter: 2024Q4

REPORT INFORMATION
  Report Type: Spontaneous
  Country: US (occurrence: None)
  Receive Date: 20241029
  Receipt Date: 20241029
  Transmission Date: 20250115
  Serious: No
  Sender: Public
  Company Number: None

PATIENT
  Age: 77 Year
  Sex: Male
  Weight: 85 kg

DRUGS (1)
  1. MELOXICAM [Suspect]
     Active Substance: MELOXICAM
     Indication: Arthritis
     Dosage: FREQUENCY : DAILY;?
     Route: 048
     Dates: start: 20190117, end: 20240628

REACTIONS (4)
  - Gastrointestinal haemorrhage [None]
  - Haematocrit decreased [None]
  - Oesophageal ulcer [None]
  - Hypophagia [None]

NARRATIVE: CASE EVENT DATE: 20240628
